FAERS Safety Report 18350233 (Version 4)
Quarter: 2025Q3

REPORT INFORMATION
  Report Type: Report from Study
  Country: US (occurrence: US)
  Receive Date: 20201006
  Receipt Date: 20250710
  Transmission Date: 20251020
  Serious: Yes (Other)
  Sender: JAZZ
  Company Number: US-GW PHARMA-202009USGW03359

PATIENT
  Age: 10 Year
  Sex: Male

DRUGS (4)
  1. EPIDIOLEX [Suspect]
     Active Substance: CANNABIDIOL
     Indication: Lennox-Gastaut syndrome
     Dosage: 100 MILLIGRAM, BID
     Dates: start: 202008, end: 202008
  2. EPIDIOLEX [Suspect]
     Active Substance: CANNABIDIOL
     Dosage: 200 MILLIGRAM, BID
     Dates: start: 202008, end: 202008
  3. EPIDIOLEX [Suspect]
     Active Substance: CANNABIDIOL
     Dosage: 300 MILLIGRAM, BID
     Dates: start: 202008
  4. EPIDIOLEX [Suspect]
     Active Substance: CANNABIDIOL
     Route: 048
     Dates: start: 202203

REACTIONS (3)
  - Seizure [Not Recovered/Not Resolved]
  - Somnolence [Unknown]
  - Fatigue [Unknown]

NARRATIVE: CASE EVENT DATE: 20200801
